FAERS Safety Report 4392892-X (Version None)
Quarter: 2004Q3

REPORT INFORMATION
  Report Type: 
  Country: None (occurrence: None)
  Receive Date: 20040708
  Receipt Date: 20020514
  Transmission Date: 20050211
  Serious: Yes (Hospitalization, Disabling)
  Sender: FDA-Public Use
  Company Number: US-MERCK-0205USA01796

PATIENT
  Age: 65 Year
  Sex: Female
  Weight: 109 kg

DRUGS (3)
  1. ACETAMINOPHEN AND HYDROCODONE BITARTRATE [Concomitant]
     Route: 065
  2. VIOXX [Suspect]
     Indication: OSTEOARTHRITIS
     Route: 048
     Dates: start: 19990101, end: 20011019
  3. VIOXX [Suspect]
     Indication: ARTHRALGIA
     Route: 048
     Dates: start: 19990101, end: 20011019

REACTIONS (27)
  - ALOPECIA [None]
  - ARTHRALGIA [None]
  - ARTHROPOD BITE [None]
  - BACK PAIN [None]
  - BLOOD GLUCOSE INCREASED [None]
  - CARDIAC FAILURE CONGESTIVE [None]
  - CERUMEN IMPACTION [None]
  - CHEST PAIN [None]
  - DIZZINESS [None]
  - DYSPNOEA [None]
  - DYSURIA [None]
  - FALL [None]
  - HEADACHE [None]
  - HODGKIN'S DISEASE [None]
  - HYPERHIDROSIS [None]
  - HYPERTENSION [None]
  - INTERVERTEBRAL DISC DEGENERATION [None]
  - JOINT SWELLING [None]
  - LABILE HYPERTENSION [None]
  - LABYRINTHITIS [None]
  - MYOCARDIAL INFARCTION [None]
  - NON-HODGKIN'S LYMPHOMA [None]
  - OEDEMA PERIPHERAL [None]
  - SKIN CANCER [None]
  - THROMBOPHLEBITIS [None]
  - VERTIGO [None]
  - WEIGHT INCREASED [None]
